FAERS Safety Report 23365856 (Version 4)
Quarter: 2024Q2

REPORT INFORMATION
  Report Type: Spontaneous
  Country: US (occurrence: US)
  Receive Date: 20240104
  Receipt Date: 20240610
  Transmission Date: 20240717
  Serious: No
  Sender: FDA-Public Use
  Company Number: US-BRISTOL-MYERS SQUIBB COMPANY-2024-001541

PATIENT
  Age: 77 Year
  Sex: Male

DRUGS (1)
  1. REVLIMID [Suspect]
     Active Substance: LENALIDOMIDE
     Indication: Plasma cell myeloma
     Route: 048
     Dates: start: 20231004

REACTIONS (6)
  - Asthenia [Unknown]
  - Feeling abnormal [Unknown]
  - Off label use [Unknown]
  - Fatigue [Unknown]
  - Product dose omission issue [Unknown]
  - Memory impairment [Unknown]
